FAERS Safety Report 7507250 (Version 5)
Quarter: 2012Q4

REPORT INFORMATION
  Report Type: 
  Country: US (occurrence: US)
  Receive Date: 20100729
  Receipt Date: 20121228
  Transmission Date: 20130627
  Serious: Yes (Congenital Anomaly, Other)
  Sender: FDA-Public Use
  Company Number: US-PFIZER INC-2010092596

PATIENT
  Sex: Male
  Weight: 3.5 kg

DRUGS (10)
  1. ZOLOFT [Suspect]
     Indication: DEPRESSIVE DISORDER
     Dosage: UNK
     Route: 064
     Dates: start: 2003
  2. ZOLOFT [Suspect]
     Dosage: UNK
     Route: 064
     Dates: start: 200501
  3. MICONAZOLE 7 [Concomitant]
     Dosage: UNK
     Route: 064
  4. PHENTERMINE [Concomitant]
     Dosage: UNK
     Route: 064
  5. CYCLOBENZAPRINE [Concomitant]
     Dosage: UNK
     Route: 064
  6. PRENATAL PLUS [Concomitant]
     Dosage: UNK
     Route: 064
  7. FERROUS SULFATE [Concomitant]
     Dosage: UNK
     Route: 064
  8. TYLENOL [Concomitant]
     Dosage: UNK
     Route: 064
  9. HYDROCODONE W/ACETAMINOPHEN [Concomitant]
     Dosage: UNK
     Route: 064
  10. TUMS [Concomitant]
     Dosage: UNK
     Route: 064

REACTIONS (13)
  - Foetal exposure during pregnancy [Unknown]
  - Hypoglycaemia neonatal [Recovered/Resolved]
  - Anomalous pulmonary venous connection [Recovered/Resolved]
  - Patent ductus arteriosus [Recovered/Resolved]
  - Atrial septal defect [Recovered/Resolved]
  - Atelectasis neonatal [Recovering/Resolving]
  - Congenital anomaly [Unknown]
  - Sepsis neonatal [Unknown]
  - Neonatal respiratory distress syndrome [Unknown]
  - Cognitive disorder [Not Recovered/Not Resolved]
  - Jaundice neonatal [Unknown]
  - Gastrooesophageal reflux disease [Not Recovered/Not Resolved]
  - Fatigue [Not Recovered/Not Resolved]
